FAERS Safety Report 5629229-1 (Version None)
Quarter: 2008Q1

REPORT INFORMATION
  Report Type: 
  Country: None (occurrence: None)
  Receive Date: 20080217
  Receipt Date: 20070213
  Transmission Date: 20080703
  Serious: No
  Sender: FDA-Public Use
  Company Number: US-BAYER-US-2007-005257

PATIENT
  Age: 38 Year
  Sex: Female
  Weight: 49 kg

DRUGS (2)
  1. FINACEA [Suspect]
     Indication: ACNE
     Route: 061
     Dates: start: 20070110, end: 20070114
  2. ANTI-WRINKLE [Concomitant]

REACTIONS (6)
  - APPLICATION SITE ERYTHEMA [None]
  - APPLICATION SITE INFLAMMATION [None]
  - APPLICATION SITE PRURITUS [None]
  - CYST [None]
  - DRUG HYPERSENSITIVITY [None]
  - SCAR [None]
